FAERS Safety Report 5911258-1 (Version None)
Quarter: 2008Q4

REPORT INFORMATION
  Report Type: 
  Country: None (occurrence: None)
  Receive Date: 20081007
  Receipt Date: 20080930
  Transmission Date: 20090506
  Serious: Yes (Other)
  Sender: FDA-Public Use
  Company Number: GB-B.I. PHARMACEUTICALS,INC./RIDGEFIELD-2008-BP-10632BP

PATIENT
  Age: 39 Year
  Sex: Female

DRUGS (6)
  1. VIRAMUNE [Suspect]
     Indication: HIV INFECTION
     Dosage: 400MG
     Route: 048
     Dates: start: 20080303
  2. VIRAMUNE [Suspect]
     Dosage: 200MG
     Route: 048
     Dates: start: 20080218, end: 20080303
  3. SUSTIVA [Suspect]
     Indication: HIV INFECTION
     Dosage: 600MG
     Route: 048
     Dates: start: 20070514, end: 20080218
  4. VIDEX [Suspect]
     Indication: HIV INFECTION
     Dosage: 250MG
     Route: 048
     Dates: start: 20070514
  5. ALUVIA [Suspect]
     Indication: HIV INFECTION
     Dosage: 1000MG
     Route: 048
     Dates: start: 20070514
  6. AMOXICILLIN [Concomitant]
     Dates: start: 20080121, end: 20080303

REACTIONS (1)
  - ABORTION SPONTANEOUS [None]
